FAERS Safety Report 11816392 (Version 1)
Quarter: 2015Q4

REPORT INFORMATION
  Report Type: Spontaneous
  Country: US (occurrence: US)
  Receive Date: 20151209
  Receipt Date: 20151209
  Transmission Date: 20160305
  Serious: No
  Sender: FDA-Public Use
  Company Number: US-009507513-1512USA005301

PATIENT
  Age: 21 Year
  Sex: Female
  Weight: 90.7 kg

DRUGS (1)
  1. NEXPLANON [Suspect]
     Active Substance: ETONOGESTREL
     Indication: CONTRACEPTION
     Route: 059

REACTIONS (4)
  - Amenorrhoea [Unknown]
  - Headache [Unknown]
  - Acne [Unknown]
  - Nausea [Unknown]

NARRATIVE: CASE EVENT DATE: 201509
